FAERS Safety Report 16270103 (Version 1)
Quarter: 2019Q2

REPORT INFORMATION
  Report Type: Spontaneous
  Country: GB (occurrence: GB)
  Receive Date: 20190503
  Receipt Date: 20190503
  Transmission Date: 20190711
  Serious: Yes (Hospitalization)
  Sender: FDA-Public Use
  Company Number: GB-PERRIGO-19GB005211

PATIENT
  Age: 84 Year
  Sex: Female

DRUGS (1)
  1. ACETAMINOPHEN. [Suspect]
     Active Substance: ACETAMINOPHEN
     Indication: INTENTIONAL OVERDOSE
     Dosage: 60 G, SINGLE
     Route: 048

REACTIONS (5)
  - Intentional overdose [Recovered/Resolved]
  - Blood gases abnormal [Recovered/Resolved]
  - Lactic acidosis [Recovered/Resolved]
  - Coma scale abnormal [Recovered/Resolved]
  - Hypotension [Recovered/Resolved]
